FAERS Safety Report 9831428 (Version 2)
Quarter: 2014Q1

REPORT INFORMATION
  Report Type: Spontaneous
  Country: DE (occurrence: DE)
  Receive Date: 20140121
  Receipt Date: 20140205
  Transmission Date: 20141002
  Serious: Yes (Other)
  Sender: FDA-Public Use
  Company Number: DE-ROCHE-1335419

PATIENT
  Age: 78 Year
  Sex: Male
  Weight: 77 kg

DRUGS (6)
  1. MABTHERA [Suspect]
     Indication: MANTLE CELL LYMPHOMA
     Route: 042
     Dates: start: 20130917, end: 20140102
  2. BENDAMUSTINE [Suspect]
     Indication: MANTLE CELL LYMPHOMA
     Route: 042
     Dates: start: 20130917, end: 20140102
  3. PARACETAMOL [Concomitant]
     Indication: PYREXIA
     Route: 048
     Dates: start: 20130917
  4. TAVEGIL [Concomitant]
     Indication: PROPHYLAXIS
     Dosage: PER CYCLE
     Route: 042
     Dates: start: 20130917
  5. ALOXI [Concomitant]
     Indication: NAUSEA
     Dosage: PER CYCLE
     Route: 042
     Dates: start: 20130917
  6. SOLU-DECORTIN [Concomitant]
     Indication: PROPHYLAXIS
     Dosage: PER CYCLE
     Route: 042
     Dates: start: 20130917

REACTIONS (1)
  - Confusional state [Recovered/Resolved]
